FAERS Safety Report 7066479-4 (Version None)
Quarter: 2010Q4

REPORT INFORMATION
  Report Type: 
  Country: None (occurrence: None)
  Receive Date: 20101027
  Receipt Date: 20100831
  Transmission Date: 20110411
  Serious: No
  Sender: FDA-Public Use
  Company Number: US-WYE-H14322410

PATIENT
  Sex: Female
  Weight: 79 kg

DRUGS (6)
  1. PREMPRO [Suspect]
     Indication: HOT FLUSH
     Dosage: ^0.6MG^ DAILY
     Route: 048
  2. PREMPRO [Suspect]
     Indication: INSOMNIA
     Dosage: UNKNOWN
     Route: 048
  3. PREMPRO [Suspect]
     Dosage: 0.3MG DAILY
     Route: 048
  4. CELEBREX [Concomitant]
  5. TYLENOL (CAPLET) [Concomitant]
  6. ADVIL [Concomitant]

REACTIONS (2)
  - POLYP [None]
  - PRURITUS [None]
